FAERS Safety Report 5880629-4 (Version None)
Quarter: 2008Q3

REPORT INFORMATION
  Report Type: 
  Country: None (occurrence: None)
  Receive Date: 20080911
  Receipt Date: 20080901
  Transmission Date: 20090109
  Serious: Yes (Hospitalization)
  Sender: FDA-Public Use
  Company Number: 2008-01088

PATIENT
  Sex: Female
  Weight: 63 kg

DRUGS (1)
  1. VELCADE [Suspect]
     Indication: MULTIPLE MYELOMA
     Dates: start: 20080208, end: 20080218

REACTIONS (4)
  - CONDITION AGGRAVATED [None]
  - INFECTION [None]
  - MYOSITIS OSSIFICANS [None]
  - VOMITING [None]
